FAERS Safety Report 18119171 (Version 1)
Quarter: 2020Q3

REPORT INFORMATION
  Report Type: Spontaneous
  Country: BR (occurrence: BR)
  Receive Date: 20200806
  Receipt Date: 20200806
  Transmission Date: 20201103
  Serious: Yes (Hospitalization)
  Sender: FDA-Public Use
  Company Number: BR-PFIZER INC-2020296135

PATIENT
  Age: 91 Year
  Sex: Female

DRUGS (1)
  1. GEODON [Suspect]
     Active Substance: ZIPRASIDONE HYDROCHLORIDE\ZIPRASIDONE MESYLATE
     Dosage: UNK

REACTIONS (3)
  - Transient ischaemic attack [Unknown]
  - Arterial occlusive disease [Unknown]
  - Aphasia [Unknown]

NARRATIVE: CASE EVENT DATE: 20200629
